FAERS Safety Report 4619333-9 (Version None)
Quarter: 2005Q1

REPORT INFORMATION
  Report Type: 
  Country: None (occurrence: None)
  Receive Date: 20050325
  Receipt Date: 20041220
  Transmission Date: 20050727
  Serious: Yes (Death, Hospitalization)
  Sender: FDA-Public Use
  Company Number: US-MERCK-0412USA02601

PATIENT
  Age: 37 Year
  Sex: Male

DRUGS (8)
  1. VIOXX [Suspect]
     Indication: ARTHRITIS
     Route: 048
     Dates: start: 20020122, end: 20031202
  2. ULTRAM [Concomitant]
     Route: 065
  3. FLEXERIL [Concomitant]
     Route: 065
  4. ULTRACET [Concomitant]
     Route: 065
  5. CYCLOBENZAPRINE HYDROCHLORIDE [Concomitant]
     Route: 065
  6. PENICILLIN (UNSPECIFIED) [Concomitant]
     Route: 065
  7. LORTAB [Concomitant]
     Route: 065
  8. TRAMADOL MSD [Concomitant]
     Route: 065

REACTIONS (12)
  - ANGIOPATHY [None]
  - ARTERY DISSECTION [None]
  - BLOOD GLUCOSE INCREASED [None]
  - BRAIN HERNIATION [None]
  - CEREBROVASCULAR ACCIDENT [None]
  - COMA [None]
  - CONTRAST MEDIA REACTION [None]
  - HYDROCEPHALUS [None]
  - HYPERTENSION [None]
  - PNEUMONIA [None]
  - RESPIRATORY ARREST [None]
  - THROMBOTIC STROKE [None]
